FAERS Safety Report 8296672-4 (Version None)
Quarter: 2012Q2

REPORT INFORMATION
  Report Type: 
  Country: None (occurrence: None)
  Receive Date: 20120418
  Receipt Date: 20120418
  Transmission Date: 20120825
  Serious: Yes (Life-Threatening, Hospitalization)
  Sender: FDA-Public Use
  Company Number: None

PATIENT
  Age: 54 Year
  Sex: Male
  Weight: 97.068 kg

DRUGS (2)
  1. LAMICTAL [Suspect]
     Indication: PAIN
     Dosage: 25 MG
     Route: 048
     Dates: start: 20110901, end: 20110914
  2. LAMICTAL [Suspect]
     Indication: SPINAL LAMINECTOMY
     Dosage: 25 MG
     Route: 048
     Dates: start: 20110901, end: 20110914

REACTIONS (3)
  - RASH [None]
  - HEADACHE [None]
  - MENINGITIS ASEPTIC [None]
